FAERS Safety Report 5164705-X (Version None)
Quarter: 2006Q4

REPORT INFORMATION
  Report Type: 
  Country: None (occurrence: None)
  Receive Date: 20061205
  Receipt Date: 20061009
  Transmission Date: 20070319
  Serious: Yes (Hospitalization)
  Sender: FDA-Public Use
  Company Number: FR-ELI_LILLY_AND_COMPANY-FR200610001688

PATIENT
  Age: 73 Year
  Sex: Male
  Weight: 73 kg

DRUGS (6)
  1. MONO-TILDIEM [Concomitant]
     Indication: MYOCARDIAL INFARCTION
     Dosage: 200 MG, DAILY (1/D)
     Route: 048
  2. PREVISCAN [Concomitant]
     Indication: DEEP VEIN THROMBOSIS
     Dosage: 20 MG, DAILY (1/D)
     Route: 048
  3. CORVASAL [Concomitant]
     Dosage: 6 MG, DAILY (1/D)
     Route: 048
  4. TRIATEC [Concomitant]
     Dosage: 2 MG, DAILY (1/D)
     Route: 048
     Dates: end: 20060901
  5. VASTEN [Concomitant]
     Dosage: 20 MG, DAILY (1/D)
     Route: 048
  6. ALIMTA [Suspect]
     Indication: NON-SMALL CELL LUNG CANCER
     Dosage: 600 MG/M2, OTHER
     Route: 042
     Dates: start: 20060801, end: 20060901

REACTIONS (3)
  - NEUTROPENIA [None]
  - RENAL FAILURE [None]
  - THROMBOCYTOPENIA [None]
